FAERS Safety Report 10067288 (Version 1)
Quarter: 2014Q2

REPORT INFORMATION
  Report Type: Spontaneous
  Country: US (occurrence: None)
  Receive Date: 20140408
  Receipt Date: 20140408
  Transmission Date: 20141212
  Serious: Yes (Death)
  Sender: FDA-Public Use
  Company Number: None

PATIENT
  Age: 90 Year
  Sex: Female
  Weight: 31 kg

DRUGS (13)
  1. LISINOPRIL 10 MG [Suspect]
     Indication: HYPERTENSION
     Dosage: 1 TABLET QD ORAL
     Route: 048
  2. LISINOPRIL 10 MG [Suspect]
     Indication: CARDIAC FAILURE CONGESTIVE
     Dosage: 1 TABLET QD ORAL
     Route: 048
  3. BUSPIRONE [Concomitant]
  4. CLONAZEPAM [Concomitant]
  5. LEXAPRO [Concomitant]
  6. GABAPENTIN [Concomitant]
  7. LACTULOSE [Concomitant]
  8. SYNTHROID [Concomitant]
  9. MIRALAX [Concomitant]
  10. SEROQUEL [Concomitant]
  11. SIMVASTATIN [Concomitant]
  12. TRAZODONE [Concomitant]
  13. ACETAMINOPHEN [Concomitant]

REACTIONS (5)
  - Hyperkalaemia [None]
  - Sinus tachycardia [None]
  - Hypotension [None]
  - Renal failure acute [None]
  - Pneumonia [None]
